FAERS Safety Report 15128902 (Version 1)
Quarter: 2018Q3

REPORT INFORMATION
  Report Type: Spontaneous
  Country: US (occurrence: US)
  Receive Date: 20180711
  Receipt Date: 20180711
  Transmission Date: 20181010
  Serious: No
  Sender: FDA-Public Use
  Company Number: US-CEDIPROF, INC.-2051709

PATIENT
  Age: 70 Year
  Sex: Female
  Weight: 69.09 kg

DRUGS (1)
  1. LEVO?T [Suspect]
     Active Substance: LEVOTHYROXINE SODIUM
     Indication: THYROID DISORDER

REACTIONS (2)
  - Feeling abnormal [Not Recovered/Not Resolved]
  - Product substitution issue [None]
